FAERS Safety Report 12009531 (Version 1)
Quarter: 2016Q1

REPORT INFORMATION
  Report Type: Spontaneous
  Country: US (occurrence: None)
  Receive Date: 20160203
  Receipt Date: 20160203
  Transmission Date: 20160526
  Serious: Yes (Hospitalization)
  Sender: FDA-Public Use
  Company Number: None

PATIENT
  Age: 59 Year
  Sex: Male

DRUGS (15)
  1. DIGOX [Concomitant]
     Active Substance: DIGOXIN
  2. SPIRONOLACT [Concomitant]
  3. SPRYCEL [Suspect]
     Active Substance: DASATINIB
     Indication: NEOPLASM MALIGNANT
     Route: 048
     Dates: start: 20140618, end: 20160122
  4. METOPROLOL. [Concomitant]
     Active Substance: METOPROLOL
  5. POT CHLORIDE [Concomitant]
     Active Substance: POTASSIUM CHLORIDE
  6. ALLOPURINOL. [Concomitant]
     Active Substance: ALLOPURINOL
  7. HYDROXYZ HCL [Concomitant]
     Active Substance: HYDROXYZINE HYDROCHLORIDE
  8. LOSARTAN POT [Concomitant]
     Active Substance: LOSARTAN POTASSIUM
  9. LOVASTATIN. [Concomitant]
     Active Substance: LOVASTATIN
  10. WARFARIN [Concomitant]
     Active Substance: WARFARIN
  11. XOPENEX HFA [Concomitant]
     Active Substance: LEVALBUTEROL TARTRATE
  12. BUMETANIDE. [Concomitant]
     Active Substance: BUMETANIDE
  13. FLUNISOLIDE. [Concomitant]
     Active Substance: FLUNISOLIDE
  14. PULMICORT TURBUHALER [Concomitant]
     Active Substance: BUDESONIDE
  15. FLOVENT HFA [Concomitant]
     Active Substance: FLUTICASONE PROPIONATE

REACTIONS (5)
  - Peritonitis [None]
  - Weight decreased [None]
  - Therapy cessation [None]
  - Abdominal pain [None]
  - Ascites [None]

NARRATIVE: CASE EVENT DATE: 201510
